FAERS Safety Report 7235060 (Version 5)
Quarter: 2013Q1

REPORT INFORMATION
  Report Type: Report from Study
  Country: TW (occurrence: TW)
  Receive Date: 20091231
  Receipt Date: 20130312
  Transmission Date: 20140127
  Serious: Yes (Hospitalization)
  Sender: FDA-Public Use
  Company Number: PHHO2009TW16101

PATIENT
  Age: 73 None
  Sex: Male
  Weight: 74 kg

DRUGS (1)
  1. ZOLEDRONATE [Suspect]
     Indication: PROSTATE CANCER
     Dosage: 4 MG, UNK
     Route: 042
     Dates: start: 20080221, end: 20091001

REACTIONS (10)
  - Osteonecrosis of jaw [Not Recovered/Not Resolved]
  - Erythema [Not Recovered/Not Resolved]
  - Osteomyelitis chronic [Not Recovered/Not Resolved]
  - Impaired healing [Not Recovered/Not Resolved]
  - Bone disorder [Not Recovered/Not Resolved]
  - Excessive granulation tissue [Not Recovered/Not Resolved]
  - Pain [Not Recovered/Not Resolved]
  - Dental caries [Not Recovered/Not Resolved]
  - Gingival pain [Not Recovered/Not Resolved]
  - Gingival abscess [Not Recovered/Not Resolved]
